FAERS Safety Report 6602653-6 (Version None)
Quarter: 2010Q1

REPORT INFORMATION
  Report Type: 
  Country: None (occurrence: None)
  Receive Date: 20100218
  Receipt Date: 20100208
  Transmission Date: 20100710
  Serious: Yes (Other)
  Sender: FDA-Public Use
  Company Number: 232705K09USA

PATIENT
  Age: 70 Year
  Sex: Female
  Weight: 68 kg

DRUGS (12)
  1. REBIF [Suspect]
     Indication: MULTIPLE SCLEROSIS
     Dosage: SEE IMAGE
     Route: 058
     Dates: start: 20081008, end: 20090901
  2. REBIF [Suspect]
     Indication: MULTIPLE SCLEROSIS
     Dosage: SEE IMAGE
     Route: 058
     Dates: start: 20080814
  3. REBIF [Suspect]
     Indication: MULTIPLE SCLEROSIS
     Dosage: SEE IMAGE
     Route: 058
     Dates: start: 20090901
  4. CHLORZOXAZONE [Concomitant]
  5. SAL-TROPINE (ATROPINE SULFATE) [Concomitant]
  6. OMEPRAZOLE [Concomitant]
  7. LORAZEPAM [Concomitant]
  8. DETROL [Concomitant]
  9. EXTRA STRENGTH TYLENOL [Concomitant]
  10. TYLENOL WITH CODEINE (PANADEINE CO) [Concomitant]
  11. SIMVASTATIN [Concomitant]
  12. TYLENOL PM (TYLENOL PM /01088101/) [Concomitant]

REACTIONS (2)
  - INJECTION SITE REACTION [None]
  - NON-HODGKIN'S LYMPHOMA [None]
